FAERS Safety Report 15642396 (Version 2)
Quarter: 2019Q1

REPORT INFORMATION
  Report Type: Spontaneous
  Country: US (occurrence: US)
  Receive Date: 20181121
  Receipt Date: 20190206
  Transmission Date: 20190417
  Serious: No
  Sender: FDA-Public Use
  Company Number: US-ALK-ABELLO A/S-2018AA003704

PATIENT

DRUGS (3)
  1. DAE BULK 729 [Suspect]
     Active Substance: EDIBLE ROCK CRAB
     Indication: PRODUCT USED FOR UNKNOWN INDICATION
  2. DAE BULK 1266 [Suspect]
     Active Substance: LOBSTER, UNSPECIFIED
     Indication: PRODUCT USED FOR UNKNOWN INDICATION
  3. DAE BULK 1458 [Suspect]
     Active Substance: CRANGON SHRIMP
     Indication: PRODUCT USED FOR UNKNOWN INDICATION

REACTIONS (1)
  - False negative investigation result [Unknown]
